FAERS Safety Report 8955883 (Version 1)
Quarter: 2012Q4

REPORT INFORMATION
  Report Type: Report from Study
  Country: JP (occurrence: JP)
  Receive Date: 20121210
  Receipt Date: 20121210
  Transmission Date: 20130627
  Serious: Yes (Other)
  Sender: FDA-Public Use
  Company Number: JP-009507513-1212JPN002375

PATIENT
  Age: 44 Year
  Sex: Male
  Weight: 86 kg

DRUGS (8)
  1. PEGINTRON [Suspect]
     Indication: CHRONIC HEPATITIS C
     Dosage: 1.5 mg/kg, qw
     Route: 058
     Dates: start: 20120809, end: 20121011
  2. REBETOL [Suspect]
     Indication: CHRONIC HEPATITIS C
     Dosage: 800 mg, qd
     Route: 048
     Dates: start: 20120809, end: 20120829
  3. REBETOL [Suspect]
     Dosage: 600 mg, qd
     Route: 048
     Dates: start: 20120830, end: 20120906
  4. REBETOL [Suspect]
     Dosage: 400 mg, qd
     Route: 048
     Dates: start: 20120907, end: 20121016
  5. TELAVIC [Suspect]
     Indication: CHRONIC HEPATITIS C
     Dosage: 2250 mg, qd
     Route: 048
     Dates: start: 20120809, end: 20121016
  6. PREDONINE [Suspect]
     Indication: ADVERSE EVENT
     Dosage: 20 mg, qd
     Route: 048
     Dates: start: 20121002, end: 20121003
  7. PREDONINE [Suspect]
     Dosage: 20 mg, qd
     Route: 048
     Dates: start: 20121004
  8. UNISIA [Concomitant]
     Indication: HYPERTENSION
     Dosage: 1 DF, qd
     Route: 048

REACTIONS (1)
  - Rash [Recovering/Resolving]
